FAERS Safety Report 6371371-4 (Version None)
Quarter: 2009Q3

REPORT INFORMATION
  Report Type: 
  Country: None (occurrence: None)
  Receive Date: 20090923
  Receipt Date: 20090909
  Transmission Date: 20100115
  Serious: Yes (Hospitalization)
  Sender: FDA-Public Use
  Company Number: FR-JNJFOC-20090906424

PATIENT
  Sex: Female

DRUGS (9)
  1. IXPRIM [Suspect]
     Dosage: 37.5/325MG
     Route: 048
  2. IXPRIM [Suspect]
     Dosage: 37.5/325MG
     Route: 048
  3. IXPRIM [Suspect]
     Dosage: 37.5/325MG
     Route: 048
  4. IXPRIM [Suspect]
     Indication: DRUG USE FOR UNKNOWN INDICATION
     Route: 048
  5. ATHYMIL [Concomitant]
  6. CORGARD [Concomitant]
  7. ENALAPRIL MALEATE [Concomitant]
  8. NEXIUM [Concomitant]
  9. XANAX [Concomitant]

REACTIONS (4)
  - ANXIETY [None]
  - HYPERTENSION [None]
  - HYPONATRAEMIA [None]
  - SENSE OF OPPRESSION [None]
